FAERS Safety Report 5441772-7 (Version None)
Quarter: 2007Q3

REPORT INFORMATION
  Report Type: 
  Country: None (occurrence: None)
  Receive Date: 20070904
  Receipt Date: 20070829
  Transmission Date: 20080115
  Serious: Yes (Death, Hospitalization)
  Sender: FDA-Public Use
  Company Number: US-GILEAD-2007-0013194

PATIENT
  Sex: Female
  Weight: 74.683 kg

DRUGS (19)
  1. LETAIRIS [Suspect]
     Indication: PH BODY FLUID
     Route: 048
  2. BOSENTAN [Concomitant]
     Indication: PULMONARY HYPERTENSION
  3. REMODULIN [Concomitant]
     Indication: PULMONARY HYPERTENSION
     Route: 042
  4. ACTONEL [Concomitant]
     Indication: OSTEOPOROSIS
     Dates: start: 20041217
  5. ALDACTONE [Concomitant]
     Dates: start: 20070711
  6. ALLEGRA [Concomitant]
     Indication: HYPERSENSITIVITY
     Dates: start: 20050316
  7. ARANESP [Concomitant]
     Indication: ANAEMIA
     Dates: start: 20060404
  8. ASPIRIN [Concomitant]
     Indication: ANTICOAGULANT THERAPY
     Dates: start: 20041217
  9. CARDIZEM CD [Concomitant]
     Dates: start: 20070613
  10. CLONAZEPAM [Concomitant]
     Indication: ANXIETY
     Dates: start: 20041217
  11. K-DUR 10 [Concomitant]
     Dates: start: 20070711
  12. LASIX [Concomitant]
     Dates: start: 20070711
  13. PAXIL [Concomitant]
     Indication: DEPRESSION
     Dates: start: 20050517
  14. PENTACARINAT [Concomitant]
     Indication: ANTIFUNGAL PROPHYLAXIS
     Dates: start: 20060720
  15. PREDNISONE [Concomitant]
     Indication: SCLERODERMA
     Dates: start: 20060105
  16. PROTONIX [Concomitant]
     Dates: start: 20070613
  17. RISPERDAL [Concomitant]
     Indication: DEPRESSION
     Dates: start: 20041217
  18. SYNTHROID [Concomitant]
     Indication: HYPOTHYROIDISM
     Dates: start: 20041217
  19. ZOFRAN [Concomitant]

REACTIONS (2)
  - RESPIRATORY DISTRESS [None]
  - RIGHT VENTRICULAR FAILURE [None]
